FAERS Safety Report 9882472 (Version 1)
Quarter: 2014Q1

REPORT INFORMATION
  Report Type: Spontaneous
  Country: US (occurrence: US)
  Receive Date: 20140207
  Receipt Date: 20140207
  Transmission Date: 20141002
  Serious: No
  Sender: FDA-Public Use
  Company Number: US-PFIZER INC-2014033309

PATIENT
  Sex: Female

DRUGS (1)
  1. LIPITOR [Suspect]
     Dosage: 10 MG, UNK
     Dates: start: 201308

REACTIONS (5)
  - Ear discomfort [Unknown]
  - Throat irritation [Unknown]
  - Swelling [Unknown]
  - Muscular weakness [Unknown]
  - Burning sensation [Unknown]
